FAERS Safety Report 14213145 (Version 1)
Quarter: 2017Q4

REPORT INFORMATION
  Report Type: Spontaneous
  Country: BE (occurrence: BE)
  Receive Date: 20171122
  Receipt Date: 20171122
  Transmission Date: 20180321
  Serious: Yes (Other)
  Sender: FDA-Public Use
  Company Number: BE-ROCHE-2023518

PATIENT
  Age: 36 Year
  Sex: Female

DRUGS (9)
  1. PLAQUENIL [Concomitant]
     Active Substance: HYDROXYCHLOROQUINE SULFATE
     Route: 065
  2. CELLCEPT [Suspect]
     Active Substance: MYCOPHENOLATE MOFETIL\MYCOPHENOLATE MOFETIL HYDROCHLORIDE
     Indication: CRYOGLOBULINAEMIA
     Route: 065
     Dates: start: 20170606
  3. PLAQUENIL [Concomitant]
     Active Substance: HYDROXYCHLOROQUINE SULFATE
     Indication: CRYOGLOBULINAEMIA
     Route: 065
     Dates: start: 20160722
  4. IMURAN [Concomitant]
     Active Substance: AZATHIOPRINE
     Route: 065
     Dates: start: 20170324
  5. CELLCEPT [Suspect]
     Active Substance: MYCOPHENOLATE MOFETIL\MYCOPHENOLATE MOFETIL HYDROCHLORIDE
     Route: 065
  6. METHYLPREDNISOLONE. [Concomitant]
     Active Substance: METHYLPREDNISOLONE
     Indication: CRYOGLOBULINAEMIA
     Route: 065
     Dates: start: 20160722
  7. IMURAN [Concomitant]
     Active Substance: AZATHIOPRINE
     Dosage: 50 (UNIT NOT REPORTED)
     Route: 065
     Dates: start: 20160722
  8. METHYLPREDNISOLONE. [Concomitant]
     Active Substance: METHYLPREDNISOLONE
     Route: 065
  9. EUSAPRIM FORTE [Concomitant]
     Active Substance: SULFAMETHOXAZOLE\TRIMETHOPRIM
     Indication: CRYOGLOBULINAEMIA
     Route: 065

REACTIONS (4)
  - Intentional product use issue [Unknown]
  - Off label use [Unknown]
  - Renal injury [Unknown]
  - Disease progression [Unknown]

NARRATIVE: CASE EVENT DATE: 20170606
